FAERS Safety Report 9314531 (Version 3)
Quarter: 2013Q3

REPORT INFORMATION
  Report Type: Report from Study
  Country: CA (occurrence: CA)
  Receive Date: 20130529
  Receipt Date: 20130916
  Transmission Date: 20140515
  Serious: Yes (Other)
  Sender: FDA-Public Use
  Company Number: CA-ROCHE-1177790

PATIENT
  Age: 65 Year
  Sex: Female
  Weight: 55.9 kg

DRUGS (15)
  1. ACTEMRA [Suspect]
     Indication: RHEUMATOID ARTHRITIS
     Route: 042
     Dates: start: 20120816
  2. METHOTREXATE [Concomitant]
     Route: 065
     Dates: start: 201211
  3. PREDNISONE [Concomitant]
     Route: 065
  4. ELAVIL [Concomitant]
  5. CITALOPRAM [Concomitant]
  6. HYDROMORPH CONTIN [Concomitant]
  7. SPIRIVA [Concomitant]
  8. SYMBICORT [Concomitant]
  9. PERCOCET [Concomitant]
     Route: 065
  10. FOLIC ACID [Concomitant]
  11. COD LIVER OIL [Concomitant]
  12. AMITRIPTYLINE [Concomitant]
     Dosage: QHS
     Route: 048
     Dates: start: 201211
  13. CESAMET [Concomitant]
     Route: 048
     Dates: start: 201211
  14. CELEXA (CANADA) [Concomitant]
     Route: 048
  15. DILAUDID [Concomitant]
     Indication: PAIN
     Route: 048

REACTIONS (7)
  - Foot fracture [Recovering/Resolving]
  - Local swelling [Unknown]
  - Weight fluctuation [Not Recovered/Not Resolved]
  - Arthropathy [Not Recovered/Not Resolved]
  - Arthralgia [Unknown]
  - Fall [Unknown]
  - Hypertension [Unknown]
